FAERS Safety Report 9545560 (Version 1)
Quarter: 2013Q3

REPORT INFORMATION
  Report Type: Spontaneous
  Country: US (occurrence: US)
  Receive Date: 20130923
  Receipt Date: 20130923
  Transmission Date: 20140515
  Serious: No
  Sender: FDA-Public Use
  Company Number: US-GLAXOSMITHKLINE-A1009915A

PATIENT
  Age: 62 Year
  Sex: Female
  Weight: 60 kg

DRUGS (5)
  1. ABREVA [Suspect]
     Indication: ORAL HERPES
     Dates: start: 20130122, end: 20130128
  2. PRAVASTATIN [Concomitant]
  3. VITAMIN D [Concomitant]
  4. ASA [Concomitant]
  5. ALPRAZOLAM [Concomitant]

REACTIONS (3)
  - Drug ineffective [Recovered/Resolved]
  - Oral herpes [Unknown]
  - Condition aggravated [Unknown]
